FAERS Safety Report 21583193 (Version 1)
Quarter: 2022Q4

REPORT INFORMATION
  Report Type: Spontaneous
  Country: US (occurrence: None)
  Receive Date: 20221110
  Receipt Date: 20221110
  Transmission Date: 20230113
  Serious: Yes (Life-Threatening, Hospitalization, Other)
  Sender: FDA-Public Use
  Company Number: None

PATIENT
  Age: 65 Year
  Sex: Male

DRUGS (2)
  1. AMOXICILLIN\CLAVULANATE POTASSIUM [Suspect]
     Active Substance: AMOXICILLIN\CLAVULANATE POTASSIUM
     Dosage: FREQUENCY : TWICE A DAY;?
     Route: 048
     Dates: start: 20220820, end: 20220827
  2. AMOXICILLIN [Suspect]
     Active Substance: AMOXICILLIN
     Dosage: FREQUENCY : TWICE A DAY;?
     Route: 048
     Dates: start: 20220815, end: 20220820

REACTIONS (3)
  - Liver function test increased [None]
  - Blood alkaline phosphatase increased [None]
  - Haemochromatosis [None]
